FAERS Safety Report 7606481-4 (Version None)
Quarter: 2011Q3

REPORT INFORMATION
  Report Type: 
  Country: None (occurrence: None)
  Receive Date: 20110713
  Receipt Date: 20110707
  Transmission Date: 20111222
  Serious: Yes (Hospitalization)
  Sender: FDA-Public Use
  Company Number: US-TEVA-287077USA

PATIENT
  Sex: Female
  Weight: 51 kg

DRUGS (21)
  1. ALUMINUM HYDROXIDE GEL [Concomitant]
     Dosage: 7200 MILLIGRAM;
     Route: 048
     Dates: start: 20110505
  2. ACETAMINOPHEN [Concomitant]
     Indication: PYREXIA
     Dosage: 2600 MILLIGRAM; AS NEEDED
     Route: 048
     Dates: start: 20110430
  3. ACETAMINOPHEN [Concomitant]
     Dosage: 2600 MILLIGRAM;
     Route: 048
     Dates: start: 20110501
  4. ONDANSETRON [Concomitant]
     Dosage: 16 MILLIGRAM;
     Route: 048
     Dates: start: 20110507
  5. DIPHENHYDRAMINE HCL [Concomitant]
     Dosage: 100 MILLIGRAM;
     Route: 042
     Dates: start: 20110504
  6. PREFEST [Concomitant]
     Route: 048
     Dates: start: 20110503
  7. CYTARABINE [Suspect]
     Indication: ACUTE MYELOID LEUKAEMIA
     Dosage: 140 MILLIGRAM;
     Route: 042
     Dates: start: 20110504, end: 20110514
  8. DEXTROSE 5% AND SODIUM CHLORIDE 0.45% IN PLASTIC CONTAINER [Concomitant]
     Route: 042
     Dates: start: 20110501
  9. ALLOPURINOL [Concomitant]
     Dosage: 300 MILLIGRAM;
     Route: 048
     Dates: start: 20110501
  10. BUPIVACAINE HCL [Concomitant]
     Dosage: .25 PERCENT;
     Route: 042
     Dates: start: 20110502
  11. HEPARIN [Concomitant]
     Route: 042
     Dates: start: 20110502
  12. HYPROMELLOSE [Concomitant]
     Dosage: 48 GTT;
     Route: 031
     Dates: end: 20110504
  13. SODIUM CHLORIDE [Concomitant]
     Dates: start: 20110502
  14. DAUNORUBICIN HCL [Suspect]
     Indication: ACUTE MYELOID LEUKAEMIA
     Route: 042
     Dates: start: 20110504, end: 20110508
  15. OXYCET [Concomitant]
     Dosage: AS NECESSARY
     Route: 048
     Dates: start: 20110501
  16. CEFTAZIDIME [Concomitant]
     Dosage: 6000 MILLIGRAM;
     Route: 042
  17. FLUCONAZOLE [Concomitant]
     Dosage: 300 DOSAGE FORMS;
     Route: 048
     Dates: start: 20110504
  18. LORAZEPAM [Concomitant]
     Dates: start: 20110505
  19. ETOPOSIDE [Suspect]
     Indication: ACUTE MYELOID LEUKAEMIA
     Dosage: 147 MILLIGRAM;
     Route: 042
     Dates: start: 20110504, end: 20110508
  20. ACETAMINOPHEN [Concomitant]
     Indication: PAIN
     Dosage: 300 MILLIGRAM;
     Route: 048
     Dates: start: 20110501
  21. ONDANSETRON [Concomitant]
     Route: 042
     Dates: start: 20110502

REACTIONS (3)
  - HYPOXIA [None]
  - PLEURAL EFFUSION [None]
  - BACTERIAL INFECTION [None]
